FAERS Safety Report 8300506-9 (Version None)
Quarter: 2012Q2

REPORT INFORMATION
  Report Type: 
  Country: None (occurrence: None)
  Receive Date: 20120420
  Receipt Date: 20120409
  Transmission Date: 20120825
  Serious: Yes (Hospitalization)
  Sender: FDA-Public Use
  Company Number: US-BIOGENIDEC-2009BI019616

PATIENT
  Age: 49 Year
  Sex: Female

DRUGS (1)
  1. TYSABRI [Suspect]
     Indication: MULTIPLE SCLEROSIS
     Route: 042
     Dates: start: 20071116, end: 20090801

REACTIONS (22)
  - ORTHOSTATIC HYPOTENSION [None]
  - GAIT DISTURBANCE [None]
  - CONFUSIONAL STATE [None]
  - DYSARTHRIA [None]
  - DIZZINESS [None]
  - DIPLOPIA [None]
  - HEADACHE [None]
  - MUSCULAR WEAKNESS [None]
  - MEMORY IMPAIRMENT [None]
  - REPETITIVE SPEECH [None]
  - HYPOTENSION [None]
  - URINARY TRACT INFECTION [None]
  - MULTIPLE SCLEROSIS [None]
  - MUSCLE SPASMS [None]
  - DEHYDRATION [None]
  - VISION BLURRED [None]
  - TINNITUS [None]
  - HERPES ZOSTER [None]
  - HYPOPHAGIA [None]
  - NEPHROLITHIASIS [None]
  - NEURALGIA [None]
  - PYREXIA [None]
